FAERS Safety Report 11876159 (Version 2)
Quarter: 2016Q1

REPORT INFORMATION
  Report Type: Report from Study
  Country: CA (occurrence: CA)
  Receive Date: 20151229
  Receipt Date: 20160218
  Transmission Date: 20160526
  Serious: Yes (Hospitalization)
  Sender: FDA-Public Use
  Company Number: CA-JNJFOC-20151218155

PATIENT
  Age: 7 Year
  Sex: Female
  Weight: 18.4 kg

DRUGS (2)
  1. STELARA [Suspect]
     Active Substance: USTEKINUMAB
     Indication: COLITIS ULCERATIVE
     Dosage: 90 MG AT 0, 2, 6 WEEKS AND THEN ONCE EVERY 8 WEEKS
     Route: 058
     Dates: start: 20151205
  2. STELARA [Suspect]
     Active Substance: USTEKINUMAB
     Indication: CROHN^S DISEASE
     Dosage: 90 MG AT 0, 2, 6 WEEKS AND THEN ONCE EVERY 8 WEEKS
     Route: 058
     Dates: start: 20151205

REACTIONS (5)
  - Vomiting [Unknown]
  - Product use issue [Unknown]
  - Off label use [Unknown]
  - Incorrect dose administered [Unknown]
  - Syncope [Unknown]

NARRATIVE: CASE EVENT DATE: 201512
